FAERS Safety Report 17694503 (Version 1)
Quarter: 2020Q2

REPORT INFORMATION
  Report Type: Spontaneous
  Country: AU (occurrence: AU)
  Receive Date: 20200422
  Receipt Date: 20200422
  Transmission Date: 20200714
  Serious: Yes (Disabling)
  Sender: FDA-Public Use
  Company Number: AU-JNJFOC-20200338361

PATIENT
  Age: 17 Year
  Sex: Male

DRUGS (2)
  1. AMITRIPTYLINE [Suspect]
     Active Substance: AMITRIPTYLINE
     Indication: MIGRAINE
     Route: 065
  2. TOPAMAX [Suspect]
     Active Substance: TOPIRAMATE
     Indication: MIGRAINE
     Route: 048

REACTIONS (5)
  - Drug intolerance [Unknown]
  - Mental disorder [Unknown]
  - Therapy non-responder [Unknown]
  - Migraine [Unknown]
  - Drug resistance [Unknown]
